FAERS Safety Report 7618247-X (Version None)
Quarter: 2011Q3

REPORT INFORMATION
  Report Type: 
  Country: None (occurrence: None)
  Receive Date: 20110718
  Receipt Date: 20110713
  Transmission Date: 20111222
  Serious: Yes (Death)
  Sender: FDA-Public Use
  Company Number: PL-VIIV HEALTHCARE LIMITED-B0729083A

PATIENT
  Sex: Male

DRUGS (7)
  1. LOSARTAN [Concomitant]
     Dates: start: 20070223
  2. EFAVIRENZ [Suspect]
     Indication: HIV INFECTION
     Dosage: 600MG PER DAY
     Route: 048
     Dates: start: 20060418, end: 20110522
  3. COMBIVIR [Suspect]
     Indication: HIV INFECTION
     Dosage: 1TAB TWICE PER DAY
     Route: 048
     Dates: start: 20060418, end: 20110522
  4. COMBIVIR [Concomitant]
     Dosage: 1TAB TWICE PER DAY
     Route: 048
     Dates: start: 20110523
  5. EFAVIRENZ [Suspect]
     Dosage: 600MG PER DAY
     Route: 048
     Dates: start: 20110523
  6. METOPROLOL TARTRATE [Concomitant]
     Dates: start: 20070615
  7. ZOPICLONE [Concomitant]
     Dates: start: 20110101

REACTIONS (1)
  - COMPLETED SUICIDE [None]
